FAERS Safety Report 10073174 (Version 3)
Quarter: 2015Q1

REPORT INFORMATION
  Report Type: Spontaneous
  Country: RU (occurrence: RU)
  Receive Date: 20140411
  Receipt Date: 20150114
  Transmission Date: 20150720
  Serious: Yes (Hospitalization)
  Sender: FDA-Public Use
  Company Number: RU-ASTRAZENECA-2014SE25344

PATIENT
  Age: 28040 Day
  Sex: Female

DRUGS (14)
  1. METFORMIN [Concomitant]
     Active Substance: METFORMIN HYDROCHLORIDE
     Indication: TYPE 2 DIABETES MELLITUS
     Route: 048
     Dates: start: 20140404
  2. FUROSEMID [Concomitant]
     Active Substance: FUROSEMIDE
     Indication: CARDIAC FAILURE CHRONIC
     Route: 042
     Dates: start: 20140404, end: 20140404
  3. AZD6140 [Suspect]
     Active Substance: TICAGRELOR
     Indication: CORONARY ARTERY DISEASE
     Route: 048
     Dates: start: 20140406, end: 20140915
  4. LIPRIMAR [Concomitant]
     Active Substance: ATORVASTATIN CALCIUM
     Indication: HYPERCHOLESTEROLAEMIA
     Route: 048
  5. DIUVER [Concomitant]
     Active Substance: TORSEMIDE
     Indication: CARDIAC FAILURE CHRONIC
     Route: 048
     Dates: end: 20140404
  6. DILTIAZEM [Suspect]
     Active Substance: DILTIAZEM
     Indication: HYPERTENSION
     Route: 048
     Dates: end: 20140404
  7. HYPOTIAZID [Concomitant]
     Indication: HYPERTENSION
     Route: 048
     Dates: end: 20140404
  8. NATRII BICARBONATIS [Concomitant]
     Indication: RENAL IMPAIRMENT
     Route: 042
     Dates: start: 20140404, end: 20140404
  9. ASA [Concomitant]
     Active Substance: ASPIRIN
     Route: 048
  10. AZD6140 [Suspect]
     Active Substance: TICAGRELOR
     Indication: CORONARY ARTERY DISEASE
     Route: 048
     Dates: start: 20110823, end: 20140404
  11. LOSAP [Concomitant]
     Indication: HYPERTENSION
     Route: 048
     Dates: start: 20140406
  12. METOPROLOL SUCCINATE. [Suspect]
     Active Substance: METOPROLOL SUCCINATE
     Route: 048
     Dates: start: 20110823
  13. LOSAP [Concomitant]
     Indication: HYPERTENSION
     Route: 048
     Dates: end: 20140404
  14. DILTIAZEM [Suspect]
     Active Substance: DILTIAZEM
     Indication: HYPERTENSION
     Route: 048
     Dates: start: 20140407

REACTIONS (1)
  - Sinus arrest [Recovered/Resolved]

NARRATIVE: CASE EVENT DATE: 20140404
